FAERS Safety Report 9408033 (Version 1)
Quarter: 2013Q3

REPORT INFORMATION
  Report Type: Spontaneous
  Country: DE (occurrence: DE)
  Receive Date: 20130718
  Receipt Date: 20130718
  Transmission Date: 20140515
  Serious: Yes (Hospitalization, Other)
  Sender: FDA-Public Use
  Company Number: DE-SHIRE-ALL1-2013-04319

PATIENT
  Age: 65 Year
  Sex: Male

DRUGS (8)
  1. XAGRID [Suspect]
     Indication: THROMBOCYTOSIS
     Dosage: UNK UNK, UNKNOWN
     Route: 048
     Dates: start: 201011, end: 20120423
  2. ATACAND [Concomitant]
     Indication: PRODUCT USED FOR UNKNOWN INDICATION
     Dosage: 8 MG, 1X/DAY:QD (HALF OF 16 MG IN THE MORNING)
     Route: 065
  3. GABAPENTIN [Concomitant]
     Indication: PRODUCT USED FOR UNKNOWN INDICATION
     Dosage: 600 MG, 3X/DAY:TID (GABAPENTIN 600MG 1 IN AM, 1AT MIDDAY + 1 IN PM)
     Route: 065
  4. GABAPENTIN [Concomitant]
     Dosage: 100 MG, 2X/DAY:BID (GABAPENTIN 100MG 1 IN AM + 1 AT PM)
     Route: 065
  5. TOREM                              /01036502/ [Concomitant]
     Indication: PRODUCT USED FOR UNKNOWN INDICATION
     Dosage: 10 MG, 1X/DAY:QD (TOREM 10MG 1 IN THE MORNING)
     Route: 065
  6. SIMVASTATIN [Concomitant]
     Indication: PRODUCT USED FOR UNKNOWN INDICATION
     Dosage: 20 MG, 1X/DAY:QD (SIMVASTATIN 20MG 1 IN THE EVENING)
     Route: 065
  7. CLEXANE [Concomitant]
     Indication: PRODUCT USED FOR UNKNOWN INDICATION
     Dosage: 80 MG, 2X/DAY:BID
     Route: 058
  8. MARCUMAR [Concomitant]
     Indication: PRODUCT USED FOR UNKNOWN INDICATION
     Dosage: UNK, UNKNOWN (1/2 UNKNOWN MG TABLET)
     Route: 065

REACTIONS (5)
  - Bundle branch block right [Unknown]
  - Pleural effusion [Recovered/Resolved]
  - Pancreatitis [Unknown]
  - Atypical pneumonia [Unknown]
  - Hyperkalaemia [Unknown]
